FAERS Safety Report 25039958 (Version 1)
Quarter: 2025Q1

REPORT INFORMATION
  Report Type: Spontaneous
  Country: FR (occurrence: FR)
  Receive Date: 20250305
  Receipt Date: 20250305
  Transmission Date: 20250408
  Serious: Yes (Other)
  Sender: AUROBINDO
  Company Number: FR-AFSSAPS-DJ2025000255

PATIENT
  Age: 56 Year
  Sex: Male
  Weight: 105 kg

DRUGS (4)
  1. METRONIDAZOLE [Suspect]
     Active Substance: METRONIDAZOLE
     Indication: Device related infection
     Dosage: 1500 MILLIGRAM, ONCE A DAY(500 MGX3/J)
     Route: 048
     Dates: start: 20240729, end: 20241019
  2. LEVOFLOXACIN [Suspect]
     Active Substance: LEVOFLOXACIN
     Indication: Device related infection
     Dosage: 1000 MILLIGRAM, ONCE A DAY(500 MGX2/J)
     Route: 048
     Dates: start: 20240729, end: 20241019
  3. SIVEXTRO [Suspect]
     Active Substance: TEDIZOLID PHOSPHATE
     Indication: Device related infection
     Dosage: 200 MILLIGRAM, ONCE A DAY
     Route: 048
     Dates: start: 20240819, end: 20241104
  4. LINEZOLID [Suspect]
     Active Substance: LINEZOLID
     Indication: Device related infection
     Dosage: 1200 MILLIGRAM, ONCE A DAY
     Route: 048
     Dates: start: 20240729, end: 20240819

REACTIONS (1)
  - Paraesthesia [Not Recovered/Not Resolved]

NARRATIVE: CASE EVENT DATE: 20241001
